FAERS Safety Report 9298831 (Version 1)
Quarter: 2013Q2

REPORT INFORMATION
  Report Type: Spontaneous
  Country: PL (occurrence: None)
  Receive Date: 20130515
  Receipt Date: 20130515
  Transmission Date: 20140414
  Serious: Yes (Life-Threatening)
  Sender: FDA-Public Use
  Company Number: 1709651

PATIENT
  Age: 65 Year
  Sex: Female
  Weight: 67.5 kg

DRUGS (1)
  1. OXALIPLATIN [Suspect]
     Indication: COLON CANCER
     Dosage: 140 MG MILLIGRAM(S) (UNKNOWN) INTRAVENOUS (NOT OTHERWISE SPECIFIED)
     Route: 042
     Dates: start: 20120820, end: 20120820

REACTIONS (7)
  - Erythema [None]
  - Hypotension [None]
  - Tachycardia [None]
  - Chest discomfort [None]
  - Hypoaesthesia [None]
  - Hyperhidrosis [None]
  - Drug hypersensitivity [None]
